FAERS Safety Report 5535771-4 (Version None)
Quarter: 2007Q4

REPORT INFORMATION
  Report Type: 
  Country: None (occurrence: None)
  Receive Date: 20071203
  Receipt Date: 20071203
  Transmission Date: 20080405
  Serious: Yes (Death)
  Sender: FDA-Public Use
  Company Number: None

PATIENT
  Age: 35 Year
  Sex: Female
  Weight: 44 kg

DRUGS (6)
  1. LAMIVUDINE AND STAVUDINE [Suspect]
     Indication: HIV INFECTION
     Dosage: 300MG/30MG QD/BID DAILY ORAL
     Route: 048
     Dates: start: 20060616, end: 20070530
  2. EFAVIRENZ [Suspect]
     Indication: HIV INFECTION
     Dosage: 600 MG QD DAILY ORAL
     Route: 048
     Dates: start: 20060616, end: 20070530
  3. DUOVIR (ZIDOVUDINE, LAMIVUDINE) [Suspect]
     Indication: HIV INFECTION
     Dosage: 300MG/300MG BID/QD DAILY ORAL
     Route: 048
     Dates: start: 20070530, end: 20070802
  4. NEVIRAPINE [Suspect]
     Indication: HIV INFECTION
     Dosage: 200MG BID DAILY ORAL
     Route: 048
     Dates: start: 20070530, end: 20070802
  5. VIREAD [Suspect]
     Indication: HIV INFECTION
     Dosage: 300MG QD ORAL
     Route: 048
     Dates: start: 20071003, end: 20071022
  6. NEVIRAPINE [Suspect]
     Indication: HIV INFECTION
     Dosage: 200MG BID ORAL
     Route: 048
     Dates: start: 20071003, end: 20071022

REACTIONS (2)
  - HYPERLACTACIDAEMIA [None]
  - MITOCHONDRIAL TOXICITY [None]
